FAERS Safety Report 10667302 (Version 1)
Quarter: 2014Q4

REPORT INFORMATION
  Report Type: Spontaneous
  Country: IT (occurrence: IT)
  Receive Date: 20141222
  Receipt Date: 20141222
  Transmission Date: 20150529
  Serious: Yes (Other)
  Sender: FDA-Public Use
  Company Number: PHHY2014IT166100

PATIENT
  Age: 40 Year
  Sex: Male

DRUGS (5)
  1. EMTRICITABINE W/TENOFOVIR [Concomitant]
     Active Substance: EMTRICITABINE\TENOFOVIR DISOPROXIL
     Indication: ANTIRETROVIRAL THERAPY
     Dosage: 1 DF, (200/245 MG) QD
     Route: 065
  2. DARUNAVIR [Concomitant]
     Active Substance: DARUNAVIR
     Indication: ANTIRETROVIRAL THERAPY
     Dosage: 800 MG, QD
     Route: 065
  3. AZACITIDINE. [Concomitant]
     Active Substance: AZACITIDINE
     Indication: ANTIRETROVIRAL THERAPY
     Dosage: 75 MG/M2, QD, FOR 7 DAYS EVERY 28 DAYS
     Route: 065
  4. RITONAVIR. [Concomitant]
     Active Substance: RITONAVIR
     Indication: ANTIRETROVIRAL THERAPY
     Dosage: 100 MG, QD
     Route: 065
  5. DEFERASIROX [Suspect]
     Active Substance: DEFERASIROX
     Indication: CHELATION THERAPY
     Dosage: 20 MG/KG, QD
     Route: 065

REACTIONS (1)
  - Haemolysis [Unknown]
